FAERS Safety Report 6766778-7 (Version None)
Quarter: 2010Q2

REPORT INFORMATION
  Report Type: 
  Country: None (occurrence: None)
  Receive Date: 20100611
  Receipt Date: 20100601
  Transmission Date: 20101027
  Serious: Yes (Life-Threatening, Hospitalization, Other)
  Sender: FDA-Public Use
  Company Number: US-ELI_LILLY_AND_COMPANY-US201004001784

PATIENT
  Age: 29 Year
  Sex: Male

DRUGS (7)
  1. ZYPREXA [Suspect]
     Indication: BIPOLAR II DISORDER
     Dosage: 1 D/F, UNK
  2. ZYPREXA [Suspect]
     Dosage: 300 MG, UNK
  3. PROZAC [Suspect]
     Dosage: 40 MG, DAILY (1/D)
     Route: 065
  4. DEPAKOTE ER [Concomitant]
     Dosage: 1000 MG, EACH MORNING
     Route: 065
  5. DEPAKOTE ER [Concomitant]
     Dosage: 1500 MG, EACH EVENING
     Route: 065
  6. WELLBUTRIN XL [Concomitant]
     Dosage: 300 MG, EACH MORNING
  7. PROPRANOLOL [Concomitant]

REACTIONS (4)
  - INTENTIONAL OVERDOSE [None]
  - RESPIRATORY DEPRESSION [None]
  - SUICIDE ATTEMPT [None]
  - UNRESPONSIVE TO STIMULI [None]
